FAERS Safety Report 5126246-5 (Version None)
Quarter: 2006Q4

REPORT INFORMATION
  Report Type: 
  Country: None (occurrence: None)
  Receive Date: 20061012
  Receipt Date: 20061002
  Transmission Date: 20070319
  Serious: Yes (Other)
  Sender: FDA-Public Use
  Company Number: SE-ABBOTT-06P-150-0345506-00

PATIENT
  Sex: Male

DRUGS (8)
  1. LIPANTHYL [Suspect]
     Indication: MIXED HYPERLIPIDAEMIA
     Dosage: REGULAR INTAKE
     Route: 048
     Dates: start: 20050930, end: 20051118
  2. LIPANTHYL [Interacting]
     Dosage: IRREGULAR INTAKE
     Dates: end: 20050930
  3. CITALOPRAM [Concomitant]
     Indication: DRUG USE FOR UNKNOWN INDICATION
  4. ENALAPRIL MALEATE [Concomitant]
     Indication: DRUG USE FOR UNKNOWN INDICATION
  5. ALLOPURINOL [Concomitant]
     Indication: DRUG USE FOR UNKNOWN INDICATION
  6. METOPROLOL SUCCINATE [Concomitant]
     Indication: DRUG USE FOR UNKNOWN INDICATION
  7. AMLODIPINE BESYLATE [Concomitant]
     Indication: DRUG USE FOR UNKNOWN INDICATION
  8. ACAMPROSATE CALCIUM [Concomitant]
     Indication: ALCOHOL USE
     Dates: start: 20050101, end: 20051101

REACTIONS (1)
  - RENAL FAILURE ACUTE [None]
